FAERS Safety Report 7474615-0 (Version None)
Quarter: 2011Q1

REPORT INFORMATION
  Report Type: 
  Country: None (occurrence: None)
  Receive Date: 20110302
  Receipt Date: 20100713
  Transmission Date: 20110831
  Serious: Yes (Death)
  Sender: FDA-Public Use
  Company Number: 163-21880-10061759

PATIENT
  Age: 67 Year
  Sex: Female
  Weight: 58.0604 kg

DRUGS (1)
  1. REVLIMID [Suspect]
     Indication: 5Q MINUS SYNDROME
     Dosage: 10 MG, DAILY FOR 21 DAYS THEN REST 7 DAYS, PO
     Route: 048
     Dates: start: 20100212, end: 20100501

REACTIONS (1)
  - DISEASE PROGRESSION [None]
